FAERS Safety Report 5975514-3 (Version None)
Quarter: 2008Q4

REPORT INFORMATION
  Report Type: 
  Country: None (occurrence: None)
  Receive Date: 20081202
  Receipt Date: 20081017
  Transmission Date: 20090506
  Serious: No
  Sender: FDA-Public Use
  Company Number: US-BAYER-200835757NA

PATIENT
  Age: 66 Year
  Sex: Male

DRUGS (2)
  1. ULTRAVIST (PHARMACY BULK) [Suspect]
     Indication: COMPUTERISED TOMOGRAM HEAD
     Dosage: TOTAL DAILY DOSE: 100 ML  UNIT DOSE: 500 ML
     Route: 042
     Dates: start: 20081003, end: 20081003
  2. BENADRYL [Concomitant]
     Dosage: TOTAL DAILY DOSE: 50 MG
     Route: 030
     Dates: start: 20081003, end: 20081003

REACTIONS (2)
  - LIP SWELLING [None]
  - PRURITUS [None]
